FAERS Safety Report 23794694 (Version 2)
Quarter: 2024Q2

REPORT INFORMATION
  Report Type: Report from Study
  Country: US (occurrence: US)
  Receive Date: 20240429
  Receipt Date: 20240610
  Transmission Date: 20240716
  Serious: Yes (Hospitalization, Other)
  Sender: FDA-Public Use
  Company Number: US-BAYER-2024A058789

PATIENT
  Age: 77 Year
  Sex: Male

DRUGS (1)
  1. NUBEQA [Suspect]
     Active Substance: DAROLUTAMIDE
     Indication: Hormone-refractory prostate cancer
     Dosage: 600 MG, BID
     Route: 048
     Dates: start: 20240319, end: 20240413

REACTIONS (4)
  - Chest pain [Not Recovered/Not Resolved]
  - Pulmonary embolism [None]
  - Dyspepsia [Recovering/Resolving]
  - Product dose omission issue [None]

NARRATIVE: CASE EVENT DATE: 20240415
